FAERS Safety Report 5506521-2 (Version None)
Quarter: 2007Q4

REPORT INFORMATION
  Report Type: 
  Country: None (occurrence: None)
  Receive Date: 20071105
  Receipt Date: 20071031
  Transmission Date: 20080405
  Serious: Yes (Other)
  Sender: FDA-Public Use
  Company Number: A0691323A

PATIENT
  Age: 49 Year
  Sex: Male
  Weight: 110 kg

DRUGS (6)
  1. AVANDIA [Suspect]
     Dosage: 4MG TWICE PER DAY
     Route: 048
     Dates: start: 20061213, end: 20070718
  2. METFORMIN [Concomitant]
     Dosage: 500MG THREE TIMES PER DAY
  3. ALTACE [Concomitant]
     Dosage: 5MG PER DAY
  4. LIPITOR [Concomitant]
     Dosage: 20MG PER DAY
  5. GLYBURIDE [Concomitant]
     Dosage: 90MG TWICE PER DAY
  6. ASPIRIN [Concomitant]
     Dosage: 81MG PER DAY

REACTIONS (1)
  - CHEST PAIN [None]
